FAERS Safety Report 6115092-1 (Version None)
Quarter: 2009Q1

REPORT INFORMATION
  Report Type: 
  Country: None (occurrence: None)
  Receive Date: 20090313
  Receipt Date: 20090306
  Transmission Date: 20090719
  Serious: Yes (Other)
  Sender: FDA-Public Use
  Company Number: B0564652A

PATIENT

DRUGS (5)
  1. KIVEXA [Suspect]
     Indication: HIV INFECTION
  2. REYATAZ [Suspect]
     Indication: HIV INFECTION
     Dates: start: 20080101
  3. NORVIR [Suspect]
     Indication: HIV INFECTION
  4. PONSTAN [Suspect]
     Dates: start: 20080221, end: 20081101
  5. ZALDIAR [Suspect]
     Dosage: 1TAB TWICE PER DAY
     Dates: start: 20080221, end: 20081101

REACTIONS (6)
  - DRUG EXPOSURE DURING PREGNANCY [None]
  - FEEDING DISORDER [None]
  - FOETAL GROWTH RETARDATION [None]
  - HYPOTONIA [None]
  - LIVE BIRTH [None]
  - WEIGHT DECREASE NEONATAL [None]
